FAERS Safety Report 21458609 (Version 1)
Quarter: 2022Q4

REPORT INFORMATION
  Report Type: Spontaneous
  Country: CN (occurrence: CN)
  Receive Date: 20221014
  Receipt Date: 20221014
  Transmission Date: 20230112
  Serious: Yes (Hospitalization)
  Sender: FDA-Public Use
  Company Number: CN-ORGANON-O2210CHN000738

PATIENT
  Age: 74 Year
  Sex: Female
  Weight: 49 kg

DRUGS (1)
  1. FOSAMAX [Suspect]
     Active Substance: ALENDRONATE SODIUM
     Indication: Osteoporosis
     Dosage: 70MG, PO, QW
     Route: 048
     Dates: start: 20220609, end: 20220609

REACTIONS (4)
  - Pyrexia [Recovered/Resolved]
  - Temperature intolerance [Recovered/Resolved]
  - Back pain [Recovered/Resolved]
  - Chest pain [Recovered/Resolved]

NARRATIVE: CASE EVENT DATE: 20220610
